FAERS Safety Report 15347153 (Version 3)
Quarter: 2018Q4

REPORT INFORMATION
  Report Type: Spontaneous
  Country: SE (occurrence: SE)
  Receive Date: 20180904
  Receipt Date: 20181019
  Transmission Date: 20190204
  Serious: Yes (Other)
  Sender: FDA-Public Use
  Company Number: SE-AMGEN-SWESP2018121211

PATIENT
  Age: 65 Year
  Sex: Female
  Weight: 38.2 kg

DRUGS (36)
  1. AMLODIPIN [Concomitant]
     Active Substance: AMLODIPINE BESYLATE
     Indication: ANGINA PECTORIS
     Dosage: 5 MG, QD
     Dates: start: 20180808
  2. CALCICHEW D3 CITRON [Concomitant]
     Indication: OSTEOPOROSIS
     Dosage: 1 DF (500 MG/400 IE), BID
     Dates: start: 20180401
  3. CITALOPRAM [Concomitant]
     Active Substance: CITALOPRAM HYDROBROMIDE
     Indication: AFFECTIVE DISORDER
  4. ESOMEPRAZOL [Concomitant]
     Active Substance: ESOMEPRAZOLE
     Indication: ABDOMINAL DISCOMFORT
     Dosage: 20 MG, QD
     Dates: start: 20180822
  5. HYDROKORTISON [Concomitant]
     Indication: ADDISON^S DISEASE
     Dosage: 10 MG (0.5 TABLET 08AM AND 0.5 TABLET 05PM), QD
     Dates: start: 20180509
  6. LACROFARM [Concomitant]
     Indication: ABDOMINAL DISCOMFORT
     Dosage: 1-2 SACHETS, QD
     Route: 048
     Dates: start: 20171028
  7. NORSPAN [Concomitant]
     Active Substance: BUPRENORPHINE
     Indication: PAIN
     Dosage: 1 DF (10 MICROGRAM), QWK
     Route: 062
     Dates: start: 20180202
  8. ACETYLCYSTEIN [Concomitant]
     Active Substance: ACETYLCYSTEINE
     Indication: INCREASED VISCOSITY OF UPPER RESPIRATORY SECRETION
     Dosage: 200 MG, TID
     Dates: start: 20170410
  9. HIRUDOID [Concomitant]
     Active Substance: GLYCOSAMINOGLYCANS
     Indication: INFLAMMATION
     Dosage: 1 APPLICATION, AS NECESSARY 2 TIMES/DAY
     Dates: start: 20180703
  10. LOMUDAL [Concomitant]
     Indication: EYE INFLAMMATION
     Dosage: 20 MG/ML (1 DROP 2-4 TIMES/DAY)
     Dates: start: 20170601
  11. CONSTELLA [Concomitant]
     Active Substance: LINACLOTIDE
     Indication: CONSTIPATION
     Dosage: 290 MUG, QD (30 MINUTE BEFORE MEAL)
     Dates: start: 20180103
  12. ELOCON [Concomitant]
     Active Substance: MOMETASONE FUROATE
     Indication: ECZEMA
     Dosage: 1 APPLICATION (0.1 % CREAM), AS NECESSARY
     Dates: start: 20170601
  13. SOLU-CORTEF [Concomitant]
     Active Substance: HYDROCORTISONE SODIUM SUCCINATE
     Indication: ADDISON^S DISEASE
     Dosage: 50-100 MG, AS NECESSARY
     Dates: start: 20170410
  14. CONSTELLA [Concomitant]
     Active Substance: LINACLOTIDE
     Indication: ABDOMINAL PAIN
  15. PREDNISOLON [Concomitant]
     Active Substance: PREDNISOLONE
     Indication: HYPERSENSITIVITY
  16. SAROTEN [Concomitant]
     Active Substance: AMITRIPTYLINE
     Indication: PAIN
     Dosage: 25 MG, QHS (BEFORE BEDTIME)
     Dates: start: 20181027
  17. PROLIA [Suspect]
     Active Substance: DENOSUMAB
     Indication: OSTEOPOROSIS POSTMENOPAUSAL
     Dosage: 60 MG, Q6MO
     Route: 058
     Dates: start: 20170410
  18. LOSARTAN. [Concomitant]
     Active Substance: LOSARTAN
     Indication: HYPERTENSION
     Dosage: 2 DF (50 MG), QD
     Dates: start: 20180518
  19. PREDNISOLON [Concomitant]
     Active Substance: PREDNISOLONE
     Indication: ADDISON^S DISEASE
     Dosage: 10 MG(1-3 TABLET AS NEEDED) (AT BREAKFAST)
     Dates: start: 20170601
  20. ABASAGLAR [Concomitant]
     Active Substance: INSULIN GLARGINE
     Indication: TYPE 2 DIABETES MELLITUS
     Dosage: 3-4 UNITS IN THE MORNING, QD
     Dates: start: 20170410
  21. CITALOPRAM [Concomitant]
     Active Substance: CITALOPRAM HYDROBROMIDE
     Indication: ANXIETY
     Dosage: 10 MG, QD
     Dates: start: 20180625
  22. METOPROLOL. [Concomitant]
     Active Substance: METOPROLOL
     Indication: HYPERTENSION
     Dosage: 25 MG, QD
     Dates: start: 20180402
  23. PREDNISOLON [Concomitant]
     Active Substance: PREDNISOLONE
     Indication: ASTHMA
  24. CUVITRU [Concomitant]
     Active Substance: HUMAN IMMUNOGLOBULIN G
     Indication: IMMUNODEFICIENCY
     Dosage: 10 ML, QWK
     Route: 058
     Dates: start: 20180320
  25. KETOGAN NOVUM [Concomitant]
     Indication: PAIN
     Dosage: 5 MG (1-4 TIMES/DAY)
     Dates: start: 20171107
  26. NIFEREX [Concomitant]
     Indication: IRON DEFICIENCY
     Dosage: 100 MG, QD
     Dates: start: 20180808
  27. INNOVAIR [Concomitant]
     Active Substance: BECLOMETHASONE DIPROPIONATE\FORMOTEROL
     Indication: CHRONIC OBSTRUCTIVE PULMONARY DISEASE
     Dosage: 2 INHALATIONS (100/6 MICROGRAM), BID
     Dates: start: 20170410
  28. ALVEDON [Concomitant]
     Active Substance: ACETAMINOPHEN
     Indication: PAIN
     Dosage: 500 MG (1-2 TABLET AS NEEDED, MAXIMUM 8 TABLETS/DAY)
     Dates: start: 20170410
  29. OXASCAND [Concomitant]
     Active Substance: OXAZEPAM
     Indication: ANXIETY
     Dosage: 5 MG (1 TABLET AS NEEDED, MAXIMUM 3 TIMES/DAY)
     Dates: start: 20170410
  30. VENTOLINE [Concomitant]
     Active Substance: ALBUTEROL
     Indication: BRONCHOSPASM
     Dosage: 1-2 INHALATION, AS NECESSARY
     Dates: start: 20170410
  31. SINGULAIR [Concomitant]
     Active Substance: MONTELUKAST SODIUM
     Indication: ASTHMA
     Dosage: 10 MG, QHS
     Dates: start: 20181027
  32. XANOR [Concomitant]
     Active Substance: ALPRAZOLAM
     Indication: MUSCLE DISORDER
     Dosage: 0.5 MG, QHS
     Dates: start: 20171027
  33. IMOVANE [Concomitant]
     Active Substance: ZOPICLONE
     Indication: INSOMNIA
     Dosage: 7.5 MG, QHS
     Dates: start: 20170410
  34. NASONEX [Concomitant]
     Active Substance: MOMETASONE FUROATE
     Indication: RHINITIS ALLERGIC
     Dosage: 50 MUG, BID
     Route: 045
     Dates: start: 20170601
  35. CONSTELLA [Concomitant]
     Active Substance: LINACLOTIDE
     Indication: IRRITABLE BOWEL SYNDROME
  36. OXASCAND [Concomitant]
     Active Substance: OXAZEPAM
     Indication: ALCOHOL ABUSE

REACTIONS (1)
  - Osteonecrosis of jaw [Not Recovered/Not Resolved]

NARRATIVE: CASE EVENT DATE: 20180503
